FAERS Safety Report 17353673 (Version 1)
Quarter: 2020Q1

REPORT INFORMATION
  Report Type: Spontaneous
  Country: FR (occurrence: FR)
  Receive Date: 20200131
  Receipt Date: 20200131
  Transmission Date: 20200409
  Serious: Yes (Hospitalization)
  Sender: FDA-Public Use
  Company Number: FR-TEVA-2020-FR-1177463

PATIENT
  Age: 53 Year
  Sex: Female
  Weight: 80 kg

DRUGS (1)
  1. IBUPROFENE [Suspect]
     Active Substance: IBUPROFEN
     Indication: BACK PAIN
     Dosage: 1 DOSAGE FORMS
     Route: 048

REACTIONS (2)
  - Oedematous pancreatitis [Recovering/Resolving]
  - Pancreatitis acute [Recovering/Resolving]

NARRATIVE: CASE EVENT DATE: 20191220
